FAERS Safety Report 8602779 (Version 3)
Quarter: 2012Q4

REPORT INFORMATION
  Report Type: 
  Country: US (occurrence: US)
  Receive Date: 20120607
  Receipt Date: 20120828
  Transmission Date: 20130627
  Serious: Yes (Hospitalization, Other)
  Sender: FDA-Public Use
  Company Number: US-B.I. PHARMACEUTICALS,INC./RIDGEFIELD-2012-BP-13012PF

PATIENT
  Sex: Female
  Weight: 77.1 kg

DRUGS (5)
  1. SPIRIVA [Suspect]
  2. PROTONIX [Suspect]
  3. LYRICA [Suspect]
  4. LYRICA [Suspect]
     Dates: start: 20120712
  5. CELEXA [Concomitant]
     Indication: DEPRESSION

REACTIONS (4)
  - Hospitalisation [Unknown]
  - Cerebrovascular accident [Unknown]
  - Confusional state [Unknown]
  - Dysphonia [Unknown]
